FAERS Safety Report 23881080 (Version 2)
Quarter: 2024Q2

REPORT INFORMATION
  Report Type: Spontaneous
  Country: TR (occurrence: TR)
  Receive Date: 20240521
  Receipt Date: 20240529
  Transmission Date: 20240716
  Serious: Yes (Other)
  Sender: FDA-Public Use
  Company Number: TR-SUN PHARMACEUTICAL INDUSTRIES LTD-2024R1-446938

PATIENT
  Age: 26 Month
  Sex: Male
  Weight: 13 kg

DRUGS (3)
  1. CINACALCET [Suspect]
     Active Substance: CINACALCET
     Indication: Hypercalcaemia
     Dosage: (15 MG PER DOSE, IN 2 DOSES PER DAY)
     Route: 065
  2. CINACALCET [Suspect]
     Active Substance: CINACALCET
     Dosage: 60 MILLIGRAM, DAILY
     Route: 065
  3. CINACALCET [Suspect]
     Active Substance: CINACALCET
     Dosage: 90 MILLIGRAM, BID
     Route: 048
     Dates: start: 202305

REACTIONS (2)
  - Blood alkaline phosphatase increased [Recovered/Resolved]
  - Off label use [Unknown]
